FAERS Safety Report 12359291 (Version 2)
Quarter: 2017Q1

REPORT INFORMATION
  Report Type: Spontaneous
  Country: US (occurrence: US)
  Receive Date: 20160512
  Receipt Date: 20170119
  Transmission Date: 20170428
  Serious: Yes (Other)
  Sender: FDA-Public Use
  Company Number: US-ELI_LILLY_AND_COMPANY-US201411003982

PATIENT
  Sex: Female
  Weight: 65.7 kg

DRUGS (3)
  1. CYMBALTA [Suspect]
     Active Substance: DULOXETINE HYDROCHLORIDE
     Dosage: 30 MG, QD
     Route: 065
     Dates: start: 20130611, end: 20130614
  2. CYMBALTA [Suspect]
     Active Substance: DULOXETINE HYDROCHLORIDE
     Indication: FIBROMYALGIA
     Dosage: UNK UNK, UNKNOWN
     Route: 065
     Dates: start: 201303
  3. CYMBALTA [Suspect]
     Active Substance: DULOXETINE HYDROCHLORIDE
     Indication: DEPRESSION
     Dosage: 60 MG, QD
     Route: 048
     Dates: start: 20130521, end: 201306

REACTIONS (37)
  - Memory impairment [Unknown]
  - Disturbance in attention [Unknown]
  - Constipation [Unknown]
  - Visual acuity reduced [Unknown]
  - Aggression [Unknown]
  - Dysarthria [Unknown]
  - Drug withdrawal syndrome [Unknown]
  - Vertigo [Unknown]
  - Muscle spasms [Unknown]
  - Anger [Unknown]
  - Tremor [Unknown]
  - Dizziness [Unknown]
  - Diarrhoea [Unknown]
  - Abdominal pain upper [Unknown]
  - Drug hypersensitivity [Unknown]
  - Mood swings [Unknown]
  - Rash [Unknown]
  - Vomiting [Unknown]
  - Paraesthesia [Unknown]
  - Dysphoria [Unknown]
  - Asthenia [Unknown]
  - Hallucination [Unknown]
  - Fatigue [Unknown]
  - Nausea [Unknown]
  - Sensory disturbance [Unknown]
  - Confusional state [Unknown]
  - Migraine with aura [Unknown]
  - Sleep disorder [Unknown]
  - Hyperhidrosis [Unknown]
  - Hypomania [Unknown]
  - Anxiety [Unknown]
  - Influenza like illness [Unknown]
  - Furuncle [Unknown]
  - Agitation [Unknown]
  - Irritability [Unknown]
  - Photophobia [Unknown]
  - Headache [Unknown]
